FAERS Safety Report 20736166 (Version 5)
Quarter: 2024Q2

REPORT INFORMATION
  Report Type: Report from Study
  Country: CA (occurrence: CA)
  Receive Date: 20220421
  Receipt Date: 20240614
  Transmission Date: 20240715
  Serious: Yes (Other)
  Sender: FDA-Public Use
  Company Number: CA-ABBVIE-22K-028-4365646-00

PATIENT
  Sex: Male

DRUGS (3)
  1. LUPRON DEPOT [Suspect]
     Active Substance: LEUPROLIDE ACETATE
     Indication: Prostate cancer
     Route: 030
     Dates: start: 20220218, end: 20221014
  2. CASODEX [Concomitant]
     Active Substance: BICALUTAMIDE
     Indication: Product used for unknown indication
  3. BICALUTAMIDE F [Concomitant]
     Indication: Product used for unknown indication
     Dates: end: 2022

REACTIONS (14)
  - Myocardial infarction [Not Recovered/Not Resolved]
  - Choking [Unknown]
  - Productive cough [Unknown]
  - Depression [Not Recovered/Not Resolved]
  - Dyspnoea [Unknown]
  - Sensory loss [Unknown]
  - Testicular atrophy [Unknown]
  - Libido decreased [Unknown]
  - Erectile dysfunction [Unknown]
  - Hot flush [Not Recovered/Not Resolved]
  - Hyperhidrosis [Unknown]
  - Visual impairment [Unknown]
  - Mental disorder [Not Recovered/Not Resolved]
  - Blood testosterone decreased [Not Recovered/Not Resolved]
